FAERS Safety Report 9422066 (Version 1)
Quarter: 2013Q3

REPORT INFORMATION
  Report Type: Spontaneous
  Country: US (occurrence: US)
  Receive Date: 20130726
  Receipt Date: 20130726
  Transmission Date: 20140515
  Serious: No
  Sender: FDA-Public Use
  Company Number: US-MYLANLABS-2012S1017722

PATIENT
  Age: 35 Year
  Sex: Female

DRUGS (5)
  1. PAROXETINE HYDROCHLORIDE EXTENDED-RELEASE TABLETS [Suspect]
     Indication: PANIC ATTACK
     Route: 048
     Dates: start: 201208, end: 201208
  2. PAROXETINE HYDROCHLORIDE EXTENDED-RELEASE TABLETS [Suspect]
     Indication: ANXIETY
     Route: 048
     Dates: start: 201208, end: 201208
  3. PAROXETINE HYDROCHLORIDE EXTENDED-RELEASE TABLETS [Suspect]
     Indication: PANIC ATTACK
     Route: 048
     Dates: start: 20120822
  4. PAROXETINE HYDROCHLORIDE EXTENDED-RELEASE TABLETS [Suspect]
     Indication: ANXIETY
     Route: 048
     Dates: start: 20120822
  5. KLONOPIN [Concomitant]
     Indication: PANIC ATTACK
     Dosage: ANXIETY

REACTIONS (2)
  - Fear [Not Recovered/Not Resolved]
  - Wrong technique in drug usage process [Not Recovered/Not Resolved]
